FAERS Safety Report 10349174 (Version 1)
Quarter: 2014Q3

REPORT INFORMATION
  Report Type: Spontaneous
  Country: AE (occurrence: AE)
  Receive Date: 20140730
  Receipt Date: 20140730
  Transmission Date: 20150326
  Serious: Yes (Other)
  Sender: FDA-Public Use
  Company Number: AE-ACCORD-025012

PATIENT
  Age: 27 Year
  Sex: Female

DRUGS (2)
  1. ESCITALOPRAM [Suspect]
     Active Substance: ESCITALOPRAM OXALATE
     Indication: DEPRESSION
     Dosage: INSTRUCTED TO INCREASE THE DOSE OF ESCITALOPRAM TO 10 MG/DAY AFTER 4 DAYS.
  2. CLONAZEPAM. [Concomitant]
     Active Substance: CLONAZEPAM
     Indication: DEPRESSION

REACTIONS (1)
  - Galactorrhoea [Recovered/Resolved]
